FAERS Safety Report 7613243-0 (Version None)
Quarter: 2011Q3

REPORT INFORMATION
  Report Type: 
  Country: None (occurrence: None)
  Receive Date: 20110708
  Receipt Date: 20110329
  Transmission Date: 20111222
  Serious: Yes (Other)
  Sender: FDA-Public Use
  Company Number: 20110313

PATIENT
  Age: 53 Year
  Sex: Male
  Weight: 75 kg

DRUGS (1)
  1. DEXAMETHASONE SODIUM PHOSPHATE [Suspect]
     Indication: MYALGIA
     Dosage: 1ML DAILYT IMES TWO DAYS INJECTION NOS
     Dates: start: 20101213, end: 20101214

REACTIONS (4)
  - INJECTION SITE REACTION [None]
  - MYALGIA [None]
  - INJECTION SITE ERYTHEMA [None]
  - INJECTION SITE PAIN [None]
